FAERS Safety Report 4998352-7 (Version None)
Quarter: 2006Q2

REPORT INFORMATION
  Report Type: 
  Country: None (occurrence: None)
  Receive Date: 20060510
  Receipt Date: 20060127
  Transmission Date: 20061013
  Serious: Yes (Hospitalization)
  Sender: FDA-Public Use
  Company Number: US-SANOFI-SYNTHELABO-A03200600601

PATIENT
  Age: 88 Year
  Sex: Female

DRUGS (6)
  1. AMBIEN [Suspect]
     Indication: INSOMNIA
     Route: 048
     Dates: start: 20051225, end: 20051226
  2. AMBIEN [Suspect]
     Route: 048
     Dates: start: 20051203, end: 20060101
  3. AMBIEN [Suspect]
     Route: 048
     Dates: start: 20051224, end: 20051225
  4. AVAPRO [Concomitant]
     Dosage: UNK
     Route: 048
  5. SOTALOL HCL [Concomitant]
     Dosage: 60 MG
     Route: 048
     Dates: start: 20020101
  6. LEXAPRO [Concomitant]
     Route: 048
     Dates: start: 20050901, end: 20051231

REACTIONS (6)
  - DRUG INEFFECTIVE [None]
  - FALL [None]
  - HUMERUS FRACTURE [None]
  - INTENTIONAL OVERDOSE [None]
  - NIGHTMARE [None]
  - SOMNOLENCE [None]
